FAERS Safety Report 8811795 (Version 1)
Quarter: 2012Q4

REPORT INFORMATION
  Report Type: 
  Country: US (occurrence: US)
  Receive Date: 20120927
  Receipt Date: 20120927
  Transmission Date: 20130627
  Serious: Yes (Death)
  Sender: FDA-Public Use
  Company Number: US-GLAXOSMITHKLINE-A0787519A

PATIENT
  Age: 72 Year
  Sex: Male
  Weight: 100 kg

DRUGS (5)
  1. AVANDIA [Suspect]
     Indication: TYPE 2 DIABETES MELLITUS
     Dosage: 4MG Twice per day
     Route: 048
     Dates: start: 1999, end: 20080403
  2. GLYBURIDE [Concomitant]
  3. METFORMIN [Concomitant]
  4. BENAZEPRIL [Concomitant]
  5. METHOTREXATE [Concomitant]

REACTIONS (1)
  - Cardiac arrest [Fatal]
